FAERS Safety Report 4612388-7 (Version None)
Quarter: 2005Q1

REPORT INFORMATION
  Report Type: 
  Country: None (occurrence: None)
  Receive Date: 20050316
  Receipt Date: 20050224
  Transmission Date: 20050727
  Serious: Yes (Hospitalization, Other)
  Sender: FDA-Public Use
  Company Number: USA050291721

PATIENT
  Age: 89 Year
  Sex: Male
  Weight: 70 kg

DRUGS (13)
  1. FORTEO [Suspect]
     Indication: OSTEOPOROSIS
     Dosage: 20 UG DAY
     Dates: start: 20041101
  2. PROZAC [Concomitant]
  3. ZELNORM [Concomitant]
  4. REGLAN [Concomitant]
  5. MUCINEX (GUAIFENESIN L.A.) [Concomitant]
  6. CITRACAL + D [Concomitant]
  7. MEGACE [Concomitant]
  8. HYTRIN [Concomitant]
  9. AMBIEN [Concomitant]
  10. DURAGESIC (FENTANYL) [Concomitant]
  11. DOCUSATE SODIUM [Concomitant]
  12. VICODIN [Concomitant]
  13. LORAZEPAM [Concomitant]

REACTIONS (8)
  - CHROMATURIA [None]
  - CONTUSION [None]
  - ECCHYMOSIS [None]
  - FALL [None]
  - HAEMATURIA [None]
  - LACERATION [None]
  - THROMBOCYTOPENIA [None]
  - WOUND HAEMORRHAGE [None]
